FAERS Safety Report 8145314 (Version 3)
Quarter: 2015Q2

REPORT INFORMATION
  Report Type: Report from Study
  Country: DE (occurrence: DE)
  Receive Date: 20110921
  Receipt Date: 20150521
  Transmission Date: 20150821
  Serious: Yes (Hospitalization, Other)
  Sender: FDA-Public Use
  Company Number: DE-AMGEN-DEUCT2011047258

PATIENT
  Age: 45 Year
  Sex: Female
  Weight: 101 kg

DRUGS (4)
  1. ELOSALIC [Concomitant]
     Indication: PSORIASIS
     Dosage: UNK, AS NECESSARY
     Dates: start: 200910
  2. ETANERCEPT [Suspect]
     Active Substance: ETANERCEPT
     Indication: PSORIASIS
     Dosage: 50 MG, 2 TIMES/WK
     Route: 058
     Dates: start: 201012, end: 201104
  3. DAIVONEX [Concomitant]
     Active Substance: CALCIPOTRIENE
     Indication: PSORIASIS
     Dosage: UNK UNK, AS NECESSARY
     Dates: start: 200910
  4. DOVOBET [Concomitant]
     Active Substance: BETAMETHASONE\CALCIPOTRIENE
     Indication: PSORIASIS
     Dosage: UNK UNK, AS NECESSARY
     Dates: start: 200910

REACTIONS (1)
  - Renal cell carcinoma [Recovered/Resolved with Sequelae]

NARRATIVE: CASE EVENT DATE: 201106
